FAERS Safety Report 5545825-4 (Version None)
Quarter: 2007Q4

REPORT INFORMATION
  Report Type: 
  Country: None (occurrence: None)
  Receive Date: 20071211
  Receipt Date: 20070927
  Transmission Date: 20080405
  Serious: No
  Sender: FDA-Public Use
  Company Number: US-ASTRAZENECA-2007UW19984

PATIENT
  Age: 13582 Day
  Sex: Male
  Weight: 183 kg

DRUGS (2)
  1. SYMBICORT [Suspect]
     Indication: ASTHMA
     Dosage: 160 MCG/4.5MCG X 2
     Route: 055
     Dates: start: 20070718, end: 20070728
  2. SYMBICORT [Suspect]
     Dosage: 160 MCG/4.5MCG X 2
     Route: 055
     Dates: start: 20070807, end: 20070815

REACTIONS (1)
  - STOMATITIS [None]
